FAERS Safety Report 4945230-5 (Version None)
Quarter: 2006Q1

REPORT INFORMATION
  Report Type: 
  Country: None (occurrence: None)
  Receive Date: 20060118
  Receipt Date: 20050208
  Transmission Date: 20060701
  Serious: Yes (Death, Other)
  Sender: FDA-Public Use
  Company Number: US-JNJFOC-20050103836

PATIENT
  Age: 60 Year
  Sex: Female
  Weight: 78.0187 kg

DRUGS (8)
  1. DOXIL [Suspect]
     Indication: BREAST CANCER METASTATIC
     Dosage: INTRAVENOUS
     Route: 042
     Dates: end: 20041217
  2. EFFEXOR XR [Concomitant]
  3. LIPITOR [Concomitant]
  4. ENALAPRIL MALEATE [Concomitant]
  5. LASIX [Concomitant]
  6. POTASSIUM CHLORIDE [Concomitant]
  7. METOPROLOL (METOPROLOL) [Concomitant]
  8. LACTULOSE [Concomitant]

REACTIONS (3)
  - BREAST CANCER [None]
  - MALIGNANT NEOPLASM PROGRESSION [None]
  - METASTASES TO LIVER [None]
